FAERS Safety Report 21496075 (Version 1)
Quarter: 2022Q4

REPORT INFORMATION
  Report Type: Report from Study
  Country: MY (occurrence: MY)
  Receive Date: 20221022
  Receipt Date: 20221022
  Transmission Date: 20230113
  Serious: Yes (Other)
  Sender: FDA-Public Use
  Company Number: MY-AMGEN-MYSSL2022170793

PATIENT
  Age: 8 Year
  Sex: Female
  Weight: 17 kg

DRUGS (1)
  1. BLINCYTO [Suspect]
     Active Substance: BLINATUMOMAB
     Indication: Acute lymphocytic leukaemia recurrent
     Dosage: 15 MICROGRAM/SQ. METER, QD
     Route: 040
     Dates: start: 20220712, end: 20220808

REACTIONS (1)
  - Minimal residual disease [Not Recovered/Not Resolved]
